FAERS Safety Report 25056310 (Version 7)
Quarter: 2025Q2

REPORT INFORMATION
  Report Type: Report from Study
  Country: JP (occurrence: JP)
  Receive Date: 20250310
  Receipt Date: 20250613
  Transmission Date: 20250716
  Serious: Yes (Hospitalization)
  Sender: ABBVIE
  Company Number: JP-ABBVIE-6166461

PATIENT
  Age: 78 Year
  Sex: Male

DRUGS (3)
  1. CARBIDOPA\LEVODOPA [Suspect]
     Active Substance: CARBIDOPA\LEVODOPA
     Indication: Parkinson^s disease
     Route: 050
     Dates: start: 20250215
  2. CARBIDOPA\LEVODOPA [Suspect]
     Active Substance: CARBIDOPA\LEVODOPA
     Route: 050
     Dates: start: 202412
  3. VYALEV [Suspect]
     Active Substance: FOSCARBIDOPA\FOSLEVODOPA
     Indication: Parkinson^s disease
     Route: 058

REACTIONS (10)
  - Dermatitis [Unknown]
  - Therapeutic product effect decreased [Unknown]
  - Stoma site discharge [Not Recovered/Not Resolved]
  - Stoma site pruritus [Unknown]
  - Hospitalisation [Unknown]
  - On and off phenomenon [Unknown]
  - Pain in extremity [Unknown]
  - Unintentional medical device removal [Unknown]
  - Parkinson^s disease [Unknown]
  - Stoma site abscess [Unknown]

NARRATIVE: CASE EVENT DATE: 20250501
